FAERS Safety Report 23130508 (Version 2)
Quarter: 2023Q4

REPORT INFORMATION
  Report Type: Report from Study
  Country: AR (occurrence: AR)
  Receive Date: 20231031
  Receipt Date: 20231211
  Transmission Date: 20240110
  Serious: Yes (Other)
  Sender: FDA-Public Use
  Company Number: AR-002147023-NVSC2023AR232365

PATIENT
  Age: 56 Year
  Sex: Female

DRUGS (4)
  1. KISQALI [Suspect]
     Active Substance: RIBOCICLIB
     Indication: Breast cancer metastatic
     Dosage: 600 MG, QD (EVERY NOON)
     Route: 048
     Dates: start: 20220502
  2. KISQALI [Suspect]
     Active Substance: RIBOCICLIB
     Dosage: UNK, (RESTS ONE WEEK EVERY 21 DAYS)
     Route: 065
  3. LETROZOLE [Suspect]
     Active Substance: LETROZOLE
     Indication: Breast cancer metastatic
     Dosage: UNK, QD (EVERY MORNING)
     Route: 065
  4. PAMIDRONATE [Concomitant]
     Active Substance: PAMIDRONATE DISODIUM
     Indication: Breast cancer metastatic
     Dosage: UNK, EVERY 28 DAYS
     Route: 065

REACTIONS (1)
  - Tumour marker increased [Unknown]

NARRATIVE: CASE EVENT DATE: 20231001
